FAERS Safety Report 5385508-7 (Version None)
Quarter: 2007Q3

REPORT INFORMATION
  Report Type: 
  Country: None (occurrence: None)
  Receive Date: 20070709
  Receipt Date: 20070626
  Transmission Date: 20080115
  Serious: Yes (Hospitalization, Other)
  Sender: FDA-Public Use
  Company Number: 2007P1000332

PATIENT
  Age: 31 Year
  Sex: Male

DRUGS (1)
  1. BUSULFAN (BUSULFAN) [Suspect]
     Indication: STEM CELL TRANSPLANT
     Dates: start: 20070419

REACTIONS (6)
  - ACUTE GRAFT VERSUS HOST DISEASE [None]
  - BLOOD BILIRUBIN INCREASED [None]
  - BLOOD LACTATE DEHYDROGENASE INCREASED [None]
  - CYSTITIS HAEMORRHAGIC [None]
  - THROMBOTIC MICROANGIOPATHY [None]
  - VIRAEMIA [None]
